FAERS Safety Report 7745186-6 (Version None)
Quarter: 2011Q3

REPORT INFORMATION
  Report Type: 
  Country: None (occurrence: None)
  Receive Date: 20110907
  Receipt Date: 20110825
  Transmission Date: 20111222
  Serious: Yes (Hospitalization, Other)
  Sender: FDA-Public Use
  Company Number: 2011P1007935

PATIENT
  Age: 31 Year
  Sex: Female
  Weight: 63.5036 kg

DRUGS (12)
  1. LAMOTRIGINE [Suspect]
     Indication: BIPOLAR DISORDER
     Dosage: 100 MG;QD;PO   25 MG;QD;PO
     Route: 048
     Dates: start: 20110501, end: 20110722
  2. LAMOTRIGINE [Suspect]
     Indication: BIPOLAR DISORDER
     Dosage: 100 MG;QD;PO   25 MG;QD;PO
     Route: 048
     Dates: start: 20110808
  3. SOMA [Concomitant]
  4. COLACE [Concomitant]
  5. METHADONE 127 MG [Concomitant]
  6. OXYCODONE 5MG [Concomitant]
  7. LAMICTAL [Concomitant]
  8. OXCARBAZEPINE [Concomitant]
  9. HYDROCODONE/TYLENOL 7.5/750 MG [Concomitant]
  10. ALBUTEROL INHALER [Concomitant]
  11. VITAMIN D [Concomitant]
  12. ADDERALL 5 [Concomitant]

REACTIONS (20)
  - OSTEOMYELITIS [None]
  - BONE GRAFT [None]
  - STAPHYLOCOCCUS TEST POSITIVE [None]
  - FRACTURE NONUNION [None]
  - CLAVICLE FRACTURE [None]
  - DEVICE BREAKAGE [None]
  - POST PROCEDURAL INFECTION [None]
  - HYPERSENSITIVITY [None]
  - ERYTHEMA MULTIFORME [None]
  - MUSCLE SPASMS [None]
  - WRONG TECHNIQUE IN DRUG USAGE PROCESS [None]
  - DEVICE FAILURE [None]
  - GASTROINTESTINAL DISORDER [None]
  - WHITE BLOOD CELL COUNT INCREASED [None]
  - APPLICATION SITE RASH [None]
  - ANGIOEDEMA [None]
  - LOCAL SWELLING [None]
  - ANAESTHETIC COMPLICATION [None]
  - DIARRHOEA [None]
  - SOMNOLENCE [None]
